FAERS Safety Report 21296950 (Version 1)
Quarter: 2022Q3

REPORT INFORMATION
  Report Type: Spontaneous
  Country: US (occurrence: None)
  Receive Date: 20220902
  Receipt Date: 20220902
  Transmission Date: 20221026
  Serious: Yes (Hospitalization)
  Sender: FDA-Public Use
  Company Number: None

PATIENT
  Age: 84 Year
  Sex: Male
  Weight: 79 kg

DRUGS (2)
  1. RIVAROXABAN [Suspect]
     Active Substance: RIVAROXABAN
     Indication: Atrial fibrillation
     Dosage: 20 MG EVERY DAY PO
     Route: 048
     Dates: start: 20210914
  2. ASPIRIN [Suspect]
     Active Substance: ASPIRIN
     Indication: Coronary arterial stent insertion
     Dosage: 81 MG EVERY DAY PO?
     Route: 048
     Dates: start: 20210914

REACTIONS (4)
  - Melaena [None]
  - Haemoglobin decreased [None]
  - Gastritis [None]
  - Diverticulum [None]

NARRATIVE: CASE EVENT DATE: 20220726
